FAERS Safety Report 10757763 (Version 1)
Quarter: 2015Q1

REPORT INFORMATION
  Report Type: Spontaneous
  Country: US (occurrence: None)
  Receive Date: 20150202
  Receipt Date: 20150202
  Transmission Date: 20150721
  Serious: Yes (Life-Threatening, Hospitalization, Disabling, Other)
  Sender: FDA-Public Use
  Company Number: None

PATIENT
  Age: 37 Year
  Sex: Female
  Weight: 71.67 kg

DRUGS (1)
  1. MIRENA [Suspect]
     Active Substance: LEVONORGESTREL
     Dates: start: 20141016

REACTIONS (4)
  - Oestrogen receptor positive breast cancer [None]
  - HER-2 positive breast cancer [None]
  - Progesterone receptor assay positive [None]
  - Medical device complication [None]

NARRATIVE: CASE EVENT DATE: 20150119
